FAERS Safety Report 7098353-1 (Version None)
Quarter: 2010Q4

REPORT INFORMATION
  Report Type: 
  Country: None (occurrence: None)
  Receive Date: 20101112
  Receipt Date: 20101105
  Transmission Date: 20110411
  Serious: No
  Sender: FDA-Public Use
  Company Number: US-PFIZER INC-2010141834

PATIENT
  Sex: Male

DRUGS (2)
  1. LIPITOR [Suspect]
     Indication: BLOOD CHOLESTEROL INCREASED
     Dosage: 20 MG, DAILY
     Route: 048
     Dates: start: 20091201
  2. TRAZODONE [Concomitant]
     Indication: INSOMNIA
     Dosage: UNK

REACTIONS (1)
  - MYALGIA [None]
